FAERS Safety Report 9500764 (Version 1)
Quarter: 2013Q3

REPORT INFORMATION
  Report Type: Spontaneous
  Country: JP (occurrence: JP)
  Receive Date: 20130905
  Receipt Date: 20130905
  Transmission Date: 20140515
  Serious: Yes (Other)
  Sender: FDA-Public Use
  Company Number: JP-ELI_LILLY_AND_COMPANY-JP201308008784

PATIENT
  Age: 83 Year
  Sex: Female

DRUGS (6)
  1. FORTEO [Suspect]
     Dosage: UNK
     Route: 058
     Dates: start: 201206
  2. LEXAPRO [Concomitant]
     Dosage: UNK
  3. PRORENAL [Concomitant]
     Dosage: UNK
  4. GLAKAY [Concomitant]
     Dosage: UNK
  5. GOODMIN [Concomitant]
     Dosage: UNK, PRN
  6. RISPERIDONE [Concomitant]
     Dosage: UNK, PRN

REACTIONS (2)
  - Fall [Unknown]
  - Femur fracture [Unknown]
